FAERS Safety Report 4497241-4 (Version None)
Quarter: 2004Q3

REPORT INFORMATION
  Report Type: 
  Country: None (occurrence: None)
  Receive Date: 20040927
  Receipt Date: 20040625
  Transmission Date: 20050211
  Serious: No
  Sender: FDA-Public Use
  Company Number: USA040671109

PATIENT
  Age: 13 Year
  Sex: Male
  Weight: 42 kg

DRUGS (3)
  1. STRATTERA [Suspect]
     Indication: INSOMNIA
     Dosage: 40 MG AT BEDTIME
     Dates: start: 20040401
  2. CONCERTA [Concomitant]
  3. DESLORATADINE [Concomitant]

REACTIONS (2)
  - DIZZINESS [None]
  - VISUAL DISTURBANCE [None]
